FAERS Safety Report 11728389 (Version 1)
Quarter: 2015Q4

REPORT INFORMATION
  Report Type: Spontaneous
  Country: US (occurrence: US)
  Receive Date: 20151110
  Receipt Date: 20151110
  Transmission Date: 20160304
  Serious: No
  Sender: FDA-Public Use
  Company Number: US-ELI_LILLY_AND_COMPANY-US201112000560

PATIENT
  Age: 54 Year
  Sex: Female

DRUGS (1)
  1. FORTEO [Suspect]
     Active Substance: TERIPARATIDE
     Indication: OSTEOPOROSIS
     Dosage: 20 UG, QD
     Dates: start: 20111123

REACTIONS (9)
  - Hypersensitivity [Unknown]
  - Gait disturbance [Unknown]
  - Arthralgia [Unknown]
  - Blood pressure decreased [Unknown]
  - Somnolence [Unknown]
  - Cough [Unknown]
  - Pelvic pain [Unknown]
  - Ear pain [Unknown]
  - Drug dose omission [Unknown]

NARRATIVE: CASE EVENT DATE: 20111125
